FAERS Safety Report 25965724 (Version 5)
Quarter: 2025Q4

REPORT INFORMATION
  Report Type: Report from Study
  Country: JP (occurrence: JP)
  Receive Date: 20251027
  Receipt Date: 20251209
  Transmission Date: 20260118
  Serious: Yes (Death, Life-Threatening, Hospitalization, Other)
  Sender: TAKEDA
  Company Number: JP-TAKEDA-2025TJP010893

PATIENT
  Age: 78 Year
  Sex: Male
  Weight: 43.8 kg

DRUGS (2)
  1. MARIBAVIR [Suspect]
     Active Substance: MARIBAVIR
     Indication: Cytomegalovirus infection
     Dosage: 400 MILLIGRAM
     Dates: start: 20241227, end: 20250124
  2. CIPROFLOXACIN [Concomitant]
     Active Substance: CIPROFLOXACIN
     Dosage: UNK

REACTIONS (2)
  - Pulmonary congestion [Fatal]
  - Immobilisation syndrome [Not Recovered/Not Resolved]

NARRATIVE: CASE EVENT DATE: 20250116
